FAERS Safety Report 8195892-7 (Version None)
Quarter: 2012Q1

REPORT INFORMATION
  Report Type: 
  Country: None (occurrence: None)
  Receive Date: 20120308
  Receipt Date: 20120228
  Transmission Date: 20120608
  Serious: Yes (Other)
  Sender: FDA-Public Use
  Company Number: US-ASTRAZENECA-2012SE13636

PATIENT
  Sex: Female

DRUGS (4)
  1. LISINOPRIL [Suspect]
     Route: 048
     Dates: start: 20080101
  2. ASPIRIN [Suspect]
     Route: 065
  3. TRIAMTERENE AND HYDROCHLOROTHIAZIDE [Suspect]
     Route: 065
     Dates: start: 20080101
  4. SULFUR [Suspect]
     Route: 065

REACTIONS (4)
  - URTICARIA [None]
  - THERAPEUTIC RESPONSE DECREASED [None]
  - GASTRIC HAEMORRHAGE [None]
  - RASH [None]
